FAERS Safety Report 4331828-4 (Version None)
Quarter: 2004Q2

REPORT INFORMATION
  Report Type: 
  Country: None (occurrence: None)
  Receive Date: 20040405
  Receipt Date: 20031031
  Transmission Date: 20050107
  Serious: No
  Sender: FDA-Public Use
  Company Number: US-GLAXOSMITHKLINE-A0432420A

PATIENT
  Age: 3 Year
  Sex: Male
  Weight: 15.9 kg

DRUGS (2)
  1. FLOVENT [Suspect]
     Indication: ASTHMA
     Route: 055
  2. XOPENEX [Concomitant]

REACTIONS (1)
  - DENTAL CARIES [None]
